FAERS Safety Report 21385769 (Version 4)
Quarter: 2024Q4

REPORT INFORMATION
  Report Type: Report from Study
  Country: US (occurrence: US)
  Receive Date: 20220928
  Receipt Date: 20241017
  Transmission Date: 20250114
  Serious: No
  Sender: NOVARTIS
  Company Number: US-NOVARTISTESTPH-NVSC2022US216696

PATIENT
  Age: 45 Year
  Sex: Female

DRUGS (1)
  1. KESIMPTA [Suspect]
     Active Substance: OFATUMUMAB
     Indication: Relapsing multiple sclerosis
     Dosage: 20 MG, QMO
     Route: 058
     Dates: start: 20210502

REACTIONS (6)
  - Feeling hot [Unknown]
  - Gait disturbance [Unknown]
  - Hormone level abnormal [Unknown]
  - Hot flush [Unknown]
  - Night sweats [Unknown]
  - Anxiety [Unknown]

NARRATIVE: CASE EVENT DATE: 20220923
